FAERS Safety Report 6597784-3 (Version None)
Quarter: 2010Q1

REPORT INFORMATION
  Report Type: 
  Country: None (occurrence: None)
  Receive Date: 20100216
  Receipt Date: 20100208
  Transmission Date: 20100710
  Serious: Yes (Hospitalization)
  Sender: FDA-Public Use
  Company Number: WAES 1002USA01208

PATIENT
  Age: 31 Year
  Sex: Male

DRUGS (10)
  1. PEPCID [Suspect]
     Dosage: 20 MG/BID/PO
     Route: 048
     Dates: start: 20080605
  2. CINACALCET HYDROCHLORIDE UNK [Suspect]
     Indication: HYPERPARATHYROIDISM SECONDARY
     Dosage: /PO
     Route: 048
     Dates: start: 20070411, end: 20091117
  3. CINACALCET HYDROCHLORIDE UNK [Suspect]
     Indication: HYPERPARATHYROIDISM SECONDARY
     Dosage: /PO
     Route: 048
     Dates: start: 20091120
  4. NEXIUM [Concomitant]
  5. TUMS [Concomitant]
  6. CALCIUM ACETATE [Concomitant]
  7. CLONIDINE [Concomitant]
  8. LISINOPRIL [Concomitant]
  9. METOPROLOL TARTRATE [Concomitant]
  10. NIFEDIPINE [Concomitant]

REACTIONS (13)
  - BLOOD CHLORIDE DECREASED [None]
  - BLOOD CREATINE PHOSPHOKINASE DECREASED [None]
  - BRAIN NATRIURETIC PEPTIDE INCREASED [None]
  - CHEST DISCOMFORT [None]
  - HAEMATOCRIT DECREASED [None]
  - HAEMOGLOBIN DECREASED [None]
  - HYPERTENSIVE EMERGENCY [None]
  - LEFT ATRIAL DILATATION [None]
  - NON-CARDIAC CHEST PAIN [None]
  - PERICARDIAL EFFUSION [None]
  - PERICARDITIS URAEMIC [None]
  - QRS AXIS ABNORMAL [None]
  - TROPONIN INCREASED [None]
